FAERS Safety Report 5001679-6 (Version None)
Quarter: 2006Q2

REPORT INFORMATION
  Report Type: 
  Country: None (occurrence: None)
  Receive Date: 20060515
  Receipt Date: 20060403
  Transmission Date: 20061013
  Serious: Yes (Life-Threatening, Hospitalization, Disabling)
  Sender: FDA-Public Use
  Company Number: CO-BRISTOL-MYERS SQUIBB COMPANY-13373105

PATIENT
  Age: 6 Month
  Sex: Female

DRUGS (1)
  1. AMIKIN [Suspect]
     Indication: DIARRHOEA
     Route: 042
     Dates: start: 19970617, end: 19970621

REACTIONS (2)
  - CARDIO-RESPIRATORY ARREST [None]
  - HYPOXIC ENCEPHALOPATHY [None]
